FAERS Safety Report 23519693 (Version 1)
Quarter: 2024Q1

REPORT INFORMATION
  Report Type: Spontaneous
  Country: BG (occurrence: BG)
  Receive Date: 20240213
  Receipt Date: 20240213
  Transmission Date: 20240409
  Serious: Yes (Other)
  Sender: FDA-Public Use
  Company Number: BG-009507513-2311BGR000733

PATIENT
  Age: 58 Year
  Sex: Female

DRUGS (4)
  1. CARBOPLATIN [Suspect]
     Active Substance: CARBOPLATIN
     Indication: Lung adenocarcinoma
     Dosage: 4-6 AUC, Q3W
     Route: 042
     Dates: start: 20190822, end: 20191024
  2. CISPLATIN [Suspect]
     Active Substance: CISPLATIN
     Indication: Lung adenocarcinoma
     Dosage: 75 MILLIGRAM/SQ. METER, Q3W
     Route: 065
     Dates: start: 20190822, end: 20191024
  3. PEMETREXED [Suspect]
     Active Substance: PEMETREXED
     Indication: Lung adenocarcinoma
     Dosage: 500 MILLIGRAM/SQ. METER, Q3W
     Route: 042
     Dates: start: 20190822, end: 20210218
  4. PEMBROLIZUMAB [Suspect]
     Active Substance: PEMBROLIZUMAB
     Indication: Lung adenocarcinoma
     Dosage: 200 MILLIGRAM, Q3W
     Route: 042
     Dates: start: 20190822

REACTIONS (12)
  - Malignant neoplasm progression [Unknown]
  - Neutropenia [Unknown]
  - Immune-mediated hypothyroidism [Unknown]
  - Neuropathy peripheral [Unknown]
  - Malaise [Unknown]
  - Vomiting [Unknown]
  - Nausea [Unknown]
  - Anaemia [Unknown]
  - Pyrexia [Unknown]
  - Diarrhoea [Unknown]
  - Therapy partial responder [Unknown]
  - Weight decreased [Unknown]

NARRATIVE: CASE EVENT DATE: 20200729
